FAERS Safety Report 4622132-5 (Version None)
Quarter: 2005Q1

REPORT INFORMATION
  Report Type: 
  Country: None (occurrence: None)
  Receive Date: 20050328
  Receipt Date: 20050316
  Transmission Date: 20050727
  Serious: No
  Sender: FDA-Public Use
  Company Number: 2005GB00549

PATIENT
  Age: 66 Year
  Sex: Male
  Weight: 96 kg

DRUGS (8)
  1. GEFITINIB [Suspect]
     Indication: PROSTATE CANCER
     Dosage: 250 MG QD PO
     Route: 048
     Dates: start: 20040121, end: 20040507
  2. GEFITINIB [Suspect]
     Indication: PROSTATE CANCER
     Dosage: 250 MG QD PO
     Route: 048
     Dates: start: 20040501, end: 20040513
  3. CASODEX [Suspect]
     Indication: PROSTATE CANCER
     Dosage: 50 MG QD PO
     Route: 048
     Dates: start: 20040121, end: 20040905
  4. ZOLADEX [Suspect]
     Indication: PROSTATE CANCER
     Dosage: 3.6 MG MONTH SQ
     Route: 058
     Dates: start: 20040126, end: 20040809
  5. ASPIRIN [Concomitant]
  6. INNOHEP [Concomitant]
  7. WARFARIN SODIUM [Concomitant]
  8. CORDARONE [Concomitant]

REACTIONS (2)
  - RASH [None]
  - SKIN INFECTION [None]
